FAERS Safety Report 19401252 (Version 1)
Quarter: 2021Q2

REPORT INFORMATION
  Report Type: Spontaneous
  Country: US (occurrence: US)
  Receive Date: 20210610
  Receipt Date: 20210610
  Transmission Date: 20210717
  Serious: No
  Sender: FDA-Public Use
  Company Number: US-MYLANLABS-2021M1031833

PATIENT
  Sex: Female

DRUGS (1)
  1. PANTOPRAZOLE SODIUM DELAYED?RELEASE TABLETS, USP [Suspect]
     Active Substance: PANTOPRAZOLE SODIUM
     Indication: IMPAIRED GASTRIC EMPTYING
     Dosage: 40 MILLIGRAM
     Route: 048

REACTIONS (2)
  - Condition aggravated [Unknown]
  - Gastritis [Unknown]
